FAERS Safety Report 11250639 (Version 1)
Quarter: 2015Q3

REPORT INFORMATION
  Report Type: Spontaneous
  Country: US (occurrence: US)
  Receive Date: 20150708
  Receipt Date: 20150708
  Transmission Date: 20151125
  Serious: Yes (Other)
  Sender: FDA-Public Use
  Company Number: US-ELI_LILLY_AND_COMPANY-US201012003187

PATIENT
  Sex: Female
  Weight: 65.76 kg

DRUGS (1)
  1. ALIMTA [Suspect]
     Active Substance: PEMETREXED DISODIUM
     Indication: NON-SMALL CELL LUNG CANCER STAGE I
     Dates: end: 20101201

REACTIONS (5)
  - Confusional state [Unknown]
  - Pancytopenia [Recovered/Resolved]
  - Drug ineffective [Unknown]
  - Renal failure [Recovered/Resolved]
  - Mucosal inflammation [Recovered/Resolved]
